FAERS Safety Report 9744061 (Version 2)
Quarter: 2014Q1

REPORT INFORMATION
  Report Type: Spontaneous
  Country: US (occurrence: US)
  Receive Date: 20131210
  Receipt Date: 20140109
  Transmission Date: 20141002
  Serious: Yes (Hospitalization, Other)
  Sender: FDA-Public Use
  Company Number: US-GILEAD-2013-0089424

PATIENT
  Age: 53 Year
  Sex: Female

DRUGS (5)
  1. LETAIRIS [Suspect]
     Indication: PULMONARY HYPERTENSION
     Dosage: 10 MG, QD
     Route: 065
     Dates: start: 20131110
  2. LETAIRIS [Suspect]
     Indication: EISENMENGER^S SYNDROME
  3. COUMADIN                           /00014802/ [Concomitant]
  4. LOW DOSE ASPIRIN [Concomitant]
  5. FERROUS SULFATE [Concomitant]

REACTIONS (1)
  - Thrombosis [Recovered/Resolved]
